FAERS Safety Report 13058073 (Version 1)
Quarter: 2016Q4

REPORT INFORMATION
  Report Type: Spontaneous
  Country: CH (occurrence: CH)
  Receive Date: 20161223
  Receipt Date: 20161223
  Transmission Date: 20170207
  Serious: Yes (Hospitalization)
  Sender: FDA-Public Use
  Company Number: PHHY2016CH173871

PATIENT
  Age: 38 Year
  Sex: Male

DRUGS (13)
  1. ENTUMINE [Suspect]
     Active Substance: CLOTHIAPINE
     Indication: PRODUCT USED FOR UNKNOWN INDICATION
     Dosage: 20 MG, QD
     Route: 048
     Dates: start: 20161013, end: 20161021
  2. CIPROFLOXACIN. [Concomitant]
     Active Substance: CIPROFLOXACIN
     Indication: PRODUCT USED FOR UNKNOWN INDICATION
     Dosage: 750 MG, Q12H (DATE OF LAST ADMINISTRATION:02 NOV 2016)
     Route: 065
     Dates: start: 20161014
  3. AMLODIPINE [Suspect]
     Active Substance: AMLODIPINE BESYLATE
     Indication: PRODUCT USED FOR UNKNOWN INDICATION
     Dosage: 10 MG, QD
     Route: 048
     Dates: start: 20161006, end: 20161016
  4. DAFALGAN [Suspect]
     Active Substance: ACETAMINOPHEN
     Indication: PRODUCT USED FOR UNKNOWN INDICATION
     Dosage: 1 G, Q8H
     Route: 048
     Dates: start: 20161006, end: 20161021
  5. SINTROM [Suspect]
     Active Substance: ACENOCOUMAROL
     Indication: PNEUMONIA
     Dosage: UNK (DATE OF LAST ADMINISTRATION: 16 OCT 2016)
     Route: 048
     Dates: start: 20161014
  6. PIPERACILLIN AND TAZOBACTAM [Suspect]
     Active Substance: PIPERACILLIN SODIUM\TAZOBACTAM SODIUM
     Indication: PNEUMONIA
     Dosage: 4.5 G, Q8H
     Route: 048
     Dates: start: 20161001, end: 20161007
  7. CEFEPIME [Suspect]
     Active Substance: CEFEPIME HYDROCHLORIDE
     Indication: PNEUMONIA
     Dosage: 3 G, QD (DATE OF LAST ADMINISTRATION:14 OCT 2016)
     Route: 041
     Dates: start: 20161007
  8. ENOXAPARINE SODIQUE [Concomitant]
     Active Substance: ENOXAPARIN SODIUM
     Indication: PRODUCT USED FOR UNKNOWN INDICATION
     Dosage: 80 MG, QD (DATE OF LAST ADMINISTRATION: 02 NOV 2016)
     Route: 058
     Dates: start: 20161018
  9. METAMIZOL [Suspect]
     Active Substance: METAMIZOLE SODIUM
     Indication: PRODUCT USED FOR UNKNOWN INDICATION
     Dosage: 1000 MG, Q12H
     Route: 048
     Dates: start: 20161007, end: 20161021
  10. LORAZEPAM. [Concomitant]
     Active Substance: LORAZEPAM
     Indication: PRODUCT USED FOR UNKNOWN INDICATION
     Dosage: 2.5 MG, QD (DATE OF LAST ADMINISTRATION:02 NOV 2016)
     Route: 048
     Dates: start: 20161001
  11. HEPARIN SODIUM. [Concomitant]
     Active Substance: HEPARIN SODIUM
     Indication: PRODUCT USED FOR UNKNOWN INDICATION
     Dosage: 32000 IU, UNK
     Route: 041
  12. ZYPREXA [Suspect]
     Active Substance: OLANZAPINE
     Indication: PSYCHOTIC DISORDER
     Dosage: 15 MG, QD (DATE OF LAST ADMINISTRATION: 17 OCT 2016
     Route: 048
     Dates: start: 20161007
  13. MORPHINE [Concomitant]
     Active Substance: MORPHINE
     Indication: PRODUCT USED FOR UNKNOWN INDICATION
     Dosage: 10 MG, Q6H (DATE OF LAST ADMINISTRATION: 02 NOV 2016)
     Route: 048
     Dates: start: 20161001

REACTIONS (2)
  - Mixed liver injury [Recovered/Resolved]
  - Mixed liver injury [Recovered/Resolved]

NARRATIVE: CASE EVENT DATE: 20161006
